FAERS Safety Report 9533260 (Version 3)
Quarter: 2015Q4

REPORT INFORMATION
  Report Type: Spontaneous
  Country: DK (occurrence: DK)
  Receive Date: 20130918
  Receipt Date: 20151123
  Transmission Date: 20160305
  Serious: Yes (Hospitalization)
  Sender: FDA-Public Use
  Company Number: DK-TEVA-430800ISR

PATIENT
  Age: 15 Year
  Sex: Female
  Weight: 49.2 kg

DRUGS (5)
  1. PROGLYCEM [Suspect]
     Active Substance: DIAZOXIDE
     Dosage: 50 MILLIGRAM DAILY; PRODUCT GIVEN ON COMPASSIONATE USE PERMIT
     Route: 048
     Dates: start: 20120320
  2. MICROGYN [Suspect]
     Active Substance: ETHINYL ESTRADIOL\LEVONORGESTREL
     Indication: DYSMENORRHOEA
     Dosage: 1 DOSAGE FORMS DAILY; 1/1 DAYS
     Route: 048
     Dates: start: 20130116
  3. PROGLYCEM [Suspect]
     Active Substance: DIAZOXIDE
     Indication: HYPOGLYCAEMIA
     Dosage: 50 MILLIGRAM DAILY; 1/1 DAYS
     Route: 048
     Dates: start: 20120116
  4. SANDOSTATIN LAR DEPOT [Suspect]
     Active Substance: OCTREOTIDE ACETATE
     Indication: HYPOGLYCAEMIA
     Dosage: 1/4 WEEKS
     Route: 030
     Dates: start: 20120418, end: 20140305
  5. GARDASIL [Suspect]
     Active Substance: HUMAN PAPILLOMAVIRUS QUADRIVALENT (TYPES 6, 11, 16, AND 18) VACCINE, RECOMBINANT
     Dosage: 20+40+40+20 MCG
     Route: 030
     Dates: start: 20100325, end: 20101007

REACTIONS (3)
  - Bone cyst [Recovered/Resolved]
  - Fracture [Recovered/Resolved]
  - Fall [Unknown]

NARRATIVE: CASE EVENT DATE: 20130428
